FAERS Safety Report 8323404-3 (Version None)
Quarter: 2012Q2

REPORT INFORMATION
  Report Type: 
  Country: None (occurrence: None)
  Receive Date: 20120430
  Receipt Date: 20120420
  Transmission Date: 20120825
  Serious: Yes (Hospitalization)
  Sender: FDA-Public Use
  Company Number: SE-ELI_LILLY_AND_COMPANY-SE201202006344

PATIENT
  Age: 71 Year
  Sex: Male

DRUGS (4)
  1. BYETTA [Suspect]
     Indication: TYPE 2 DIABETES MELLITUS
     Dosage: 5 UG, BID
     Dates: start: 20120217, end: 20120218
  2. METFORMIN HCL [Concomitant]
     Indication: DIABETES MELLITUS
     Dosage: 850 MG, TID
  3. SULFURIC ACID [Concomitant]
  4. INSULIN GLARGINE [Concomitant]
     Indication: DIABETES MELLITUS
     Dosage: 14 DF, UNKNOWN

REACTIONS (4)
  - OFF LABEL USE [None]
  - ATRIOVENTRICULAR BLOCK [None]
  - HYPERHIDROSIS [None]
  - BRADYCARDIA [None]
